FAERS Safety Report 11544276 (Version 1)
Quarter: 2015Q3

REPORT INFORMATION
  Report Type: Spontaneous
  Country: US (occurrence: None)
  Receive Date: 20150923
  Receipt Date: 20150923
  Transmission Date: 20151125
  Serious: Yes (Life-Threatening)
  Sender: FDA-Public Use
  Company Number: None

PATIENT
  Age: 42 Year
  Sex: Male
  Weight: 64.86 kg

DRUGS (2)
  1. AMOXICILLIN. [Concomitant]
     Active Substance: AMOXICILLIN
  2. FLUOROQUINOLONE CIPROFLOXACIN HCL 750 MG [Suspect]
     Active Substance: CIPROFLOXACIN HYDROCHLORIDE
     Indication: INFECTION
     Dosage: TAKEN BY MOUTH
     Dates: start: 20150917, end: 20150920

REACTIONS (5)
  - Pain [None]
  - Confusional state [None]
  - Asthenia [None]
  - Heart rate increased [None]
  - Disturbance in attention [None]

NARRATIVE: CASE EVENT DATE: 20150920
